FAERS Safety Report 8051804-8 (Version None)
Quarter: 2012Q1

REPORT INFORMATION
  Report Type: 
  Country: None (occurrence: None)
  Receive Date: 20120118
  Receipt Date: 20120111
  Transmission Date: 20120608
  Serious: Yes (Other)
  Sender: FDA-Public Use
  Company Number: US-BRISTOL-MYERS SQUIBB COMPANY-16219784

PATIENT
  Age: 64 Year
  Sex: Female
  Weight: 59 kg

DRUGS (2)
  1. COUMADIN [Suspect]
     Indication: DEEP VEIN THROMBOSIS
     Dosage: INITIALLY 1999 TAKANE OFF 6 DAYS A WEEK 5MG AND ONE DAY 2.5MG IN 2011(LAST 5MONTHS)
     Dates: start: 19990101
  2. KEFLEX [Concomitant]

REACTIONS (2)
  - COLON CANCER [None]
  - HIP SURGERY [None]
